FAERS Safety Report 5293826-6 (Version None)
Quarter: 2007Q2

REPORT INFORMATION
  Report Type: 
  Country: None (occurrence: None)
  Receive Date: 20070411
  Receipt Date: 20070330
  Transmission Date: 20071010
  Serious: Yes (Other)
  Sender: FDA-Public Use
  Company Number: US-PFIZER INC-2007006954

PATIENT
  Sex: Female
  Weight: 57.2 kg

DRUGS (4)
  1. LYRICA [Suspect]
     Indication: PAIN
  2. LYRICA [Suspect]
     Indication: HYPOAESTHESIA
  3. LYRICA [Suspect]
     Indication: PAIN IN EXTREMITY
  4. DETROL LA [Suspect]

REACTIONS (2)
  - DRUG INEFFECTIVE [None]
  - SURGERY [None]
